FAERS Safety Report 9719262 (Version 3)
Quarter: 2014Q1

REPORT INFORMATION
  Report Type: Spontaneous
  Country: JP (occurrence: JP)
  Receive Date: 20131127
  Receipt Date: 20140206
  Transmission Date: 20141002
  Serious: Yes (Hospitalization)
  Sender: FDA-Public Use
  Company Number: PHHY2013JP136645

PATIENT
  Age: 3 Year
  Sex: Male

DRUGS (2)
  1. TEGRETOL [Suspect]
     Indication: PARTIAL SEIZURES
     Dosage: 70 MG, DAILY
     Route: 048
     Dates: start: 20130526, end: 20131115
  2. TEGRETOL [Suspect]
     Dosage: 70 MG, DAILY
     Route: 048
     Dates: start: 20131117

REACTIONS (3)
  - Status epilepticus [Recovering/Resolving]
  - Anticonvulsant drug level decreased [Unknown]
  - Drug ineffective [Unknown]
